FAERS Safety Report 25947977 (Version 2)
Quarter: 2025Q4

REPORT INFORMATION
  Report Type: Spontaneous
  Country: EU (occurrence: EU)
  Receive Date: 20251022
  Receipt Date: 20251029
  Transmission Date: 20260118
  Serious: Yes (Life-Threatening)
  Sender: OTSUKA
  Company Number: None

PATIENT
  Age: 56 Year
  Sex: Female
  Weight: 60 kg

DRUGS (1)
  1. ABILIFY MAINTENA [Suspect]
     Active Substance: ARIPIPRAZOLE
     Indication: Schizoaffective disorder
     Dosage: 400 MG, EVERY 35 DAYS

REACTIONS (6)
  - Raynaud^s phenomenon [Not Recovered/Not Resolved]
  - Drop attacks [Not Recovered/Not Resolved]
  - Cardiovascular disorder [Not Recovered/Not Resolved]
  - Aneurysm [Not Recovered/Not Resolved]
  - Ischaemia [Not Recovered/Not Resolved]
  - Connective tissue disorder [Not Recovered/Not Resolved]

NARRATIVE: CASE EVENT DATE: 20210527
